FAERS Safety Report 4504287-6 (Version None)
Quarter: 2004Q4

REPORT INFORMATION
  Report Type: 
  Country: None (occurrence: None)
  Receive Date: 20041118
  Receipt Date: 20041111
  Transmission Date: 20050328
  Serious: Yes (Other)
  Sender: FDA-Public Use
  Company Number: JP-BRISTOL-MYERS SQUIBB COMPANY-12767943

PATIENT
  Age: 27 Year
  Sex: Female

DRUGS (2)
  1. CYCLOPHOSPHAMIDE [Suspect]
     Indication: LUPUS NEPHRITIS
     Dates: start: 20020601, end: 20020601
  2. METHOTREXATE [Suspect]
     Indication: ARTHRALGIA

REACTIONS (2)
  - DENTAL CARIES [None]
  - MYELODYSPLASTIC SYNDROME [None]
